FAERS Safety Report 7669030-0 (Version None)
Quarter: 2011Q3

REPORT INFORMATION
  Report Type: 
  Country: None (occurrence: None)
  Receive Date: 20110808
  Receipt Date: 20110724
  Transmission Date: 20111222
  Serious: Yes (Other)
  Sender: FDA-Public Use
  Company Number: KR-BAUSCH-2011BL000220

PATIENT
  Age: 42 Year
  Sex: Male
  Weight: 76 kg

DRUGS (5)
  1. FLUOCINOLONE ACETONIDE [Suspect]
     Indication: BEHCET'S SYNDROME
     Route: 047
     Dates: start: 20090325
  2. AZATHIOPRINE [Concomitant]
  3. SUBTENONTRIAMCINOLONE [Concomitant]
  4. CYCLOSPORINE [Concomitant]
     Route: 048
     Dates: start: 20070201, end: 20091201
  5. PREDNISOLONE [Concomitant]
     Indication: UVEITIS
     Route: 048
     Dates: start: 20070201, end: 20091201

REACTIONS (7)
  - CORNEAL OEDEMA [None]
  - VISUAL IMPAIRMENT [None]
  - INFECTION IN AN IMMUNOCOMPROMISED HOST [None]
  - CORNEAL ENDOTHELIITIS [None]
  - CYTOMEGALOVIRUS INFECTION [None]
  - VISUAL ACUITY REDUCED [None]
  - CORNEAL DISORDER [None]
